FAERS Safety Report 4374091-0 (Version None)
Quarter: 2004Q2

REPORT INFORMATION
  Report Type: 
  Country: None (occurrence: None)
  Receive Date: 20040607
  Receipt Date: 20040526
  Transmission Date: 20050107
  Serious: Yes (Death)
  Sender: FDA-Public Use
  Company Number: JP-ROCHE-369011

PATIENT
  Age: 88 Year
  Sex: Female

DRUGS (2)
  1. ROCEPHIN [Suspect]
     Indication: PNEUMONIA
     Route: 042
     Dates: start: 20040502, end: 20040505
  2. PAXIL [Concomitant]
     Indication: DEPRESSION

REACTIONS (2)
  - HEPATOTOXICITY [None]
  - MALNUTRITION [None]
